FAERS Safety Report 19192952 (Version 2)
Quarter: 2021Q3

REPORT INFORMATION
  Report Type: Spontaneous
  Country: CA (occurrence: CA)
  Receive Date: 20210429
  Receipt Date: 20210930
  Transmission Date: 20211014
  Serious: Yes (Other)
  Sender: FDA-Public Use
  Company Number: CA-AUROBINDO-AUR-APL-2021-016715

PATIENT
  Age: 56 Year
  Sex: Female
  Weight: 58 kg

DRUGS (6)
  1. SALBUTAMOL SULFATE [Suspect]
     Active Substance: ALBUTEROL SULFATE
     Indication: ASTHMA
     Dosage: UNK
     Route: 065
  2. BRICANYL [Suspect]
     Active Substance: TERBUTALINE SULFATE
     Indication: PRODUCT USED FOR UNKNOWN INDICATION
     Dosage: UNK
  3. ADVAIR HFA [Suspect]
     Active Substance: FLUTICASONE PROPIONATE\SALMETEROL XINAFOATE
     Indication: ASTHMA
     Dosage: 2 DOSAGE FORM, TWO TIMES A DAY
     Route: 065
  4. PREDNISONE. [Suspect]
     Active Substance: PREDNISONE
     Indication: ASTHMA
     Dosage: 7.5 MILLIGRAM, ONCE A DAY
     Route: 065
  5. MONTELUKAST [Suspect]
     Active Substance: MONTELUKAST SODIUM
     Indication: PRODUCT USED FOR UNKNOWN INDICATION
     Dosage: UNK
     Route: 065
  6. SINGULAIR [Suspect]
     Active Substance: MONTELUKAST SODIUM
     Indication: ASTHMA
     Dosage: 10 MILLIGRAM, ONCE A DAY
     Route: 065

REACTIONS (17)
  - Foot fracture [Unknown]
  - Nasal obstruction [Unknown]
  - Condition aggravated [Unknown]
  - Skin discolouration [Unknown]
  - Quality of life decreased [Unknown]
  - Asthma [Unknown]
  - Blood count abnormal [Unknown]
  - Angina pectoris [Unknown]
  - Dyspnoea [Unknown]
  - Rash [Unknown]
  - Sinusitis [Unknown]
  - Wheezing [Unknown]
  - Loss of personal independence in daily activities [Unknown]
  - Arthritis [Unknown]
  - Cardiac disorder [Unknown]
  - Sleep disorder due to a general medical condition [Unknown]
  - Eosinophilic granulomatosis with polyangiitis [Unknown]
